FAERS Safety Report 8905247 (Version 1)
Quarter: 2012Q4

REPORT INFORMATION
  Report Type: 
  Country: AR (occurrence: AR)
  Receive Date: 20121112
  Receipt Date: 20121112
  Transmission Date: 20130627
  Serious: Yes (Other)
  Sender: FDA-Public Use
  Company Number: PHHY2012AR103577

PATIENT
  Age: 59 Year
  Sex: Female

DRUGS (1)
  1. DIOVAN [Suspect]
     Indication: HYPERTENSION
     Dosage: 0.5 DF (160 mg), daily

REACTIONS (3)
  - Femoral neck fracture [Recovered/Resolved]
  - Gait disturbance [Recovered/Resolved]
  - Wrong technique in drug usage process [Unknown]
